FAERS Safety Report 5214066-2 (Version None)
Quarter: 2007Q1

REPORT INFORMATION
  Report Type: 
  Country: None (occurrence: None)
  Receive Date: 20070122
  Receipt Date: 20070108
  Transmission Date: 20070707
  Serious: Yes (Other)
  Sender: FDA-Public Use
  Company Number: CA-BRISTOL-MYERS SQUIBB COMPANY-13641980

PATIENT
  Age: 57 Year
  Sex: Male

DRUGS (2)
  1. METOPROLOL TARTRATE [Suspect]
  2. HALOPERIDOL [Concomitant]

REACTIONS (2)
  - ANXIETY [None]
  - HALLUCINATION, VISUAL [None]
